FAERS Safety Report 6113796-8 (Version None)
Quarter: 2009Q1

REPORT INFORMATION
  Report Type: 
  Country: None (occurrence: None)
  Receive Date: 20090312
  Receipt Date: 20090205
  Transmission Date: 20090719
  Serious: Yes (Death)
  Sender: FDA-Public Use
  Company Number: US-B.I. PHARMACEUTICALS,INC./RIDGEFIELD-2009-BP-02948PF

PATIENT
  Sex: Male
  Weight: 43 kg

DRUGS (6)
  1. SPIRIVA [Suspect]
     Indication: EMPHYSEMA
     Dates: start: 20040101, end: 20061101
  2. UNKNOWN PFIZER MEDICATION [Concomitant]
  3. UNKNOWN MEDICATION [Concomitant]
  4. MORPHINE [Concomitant]
  5. STOOL SOFTENERS [Concomitant]
  6. ANTI-NAUSEA MEDICATIONS [Concomitant]

REACTIONS (4)
  - ABDOMINAL PAIN [None]
  - COLORECTAL CANCER [None]
  - MALAISE [None]
  - WEIGHT DECREASED [None]
